FAERS Safety Report 5825794-X (Version None)
Quarter: 2008Q3

REPORT INFORMATION
  Report Type: 
  Country: None (occurrence: None)
  Receive Date: 20080729
  Receipt Date: 20080721
  Transmission Date: 20090109
  Serious: Yes (Life-Threatening)
  Sender: FDA-Public Use
  Company Number: FR-ASTRAZENECA-2008CG01088

PATIENT
  Age: 14 Year
  Sex: Male

DRUGS (15)
  1. DIPRIVAN [Suspect]
     Indication: INDUCTION OF ANAESTHESIA
     Route: 040
     Dates: start: 20080610, end: 20080610
  2. COZAAR [Suspect]
     Indication: HYPERTENSION
     Route: 048
     Dates: start: 20080426
  3. MOPRAL [Concomitant]
  4. PROGRAF [Concomitant]
  5. ARAVA [Concomitant]
     Dates: start: 20080424
  6. CORTANCYL [Concomitant]
  7. RENITEC [Concomitant]
  8. ESTULIC [Concomitant]
  9. SECTRAL [Concomitant]
  10. CHRONADALATE [Concomitant]
  11. BACTRIM [Concomitant]
  12. RENAGEL [Concomitant]
  13. CREON [Concomitant]
  14. UN-ALFA [Concomitant]
  15. KAYEXALATE [Concomitant]

REACTIONS (3)
  - BRONCHOSPASM [None]
  - CARDIO-RESPIRATORY ARREST [None]
  - HYPERKALAEMIA [None]
